FAERS Safety Report 24593140 (Version 2)
Quarter: 2024Q4

REPORT INFORMATION
  Report Type: Spontaneous
  Country: JP (occurrence: JP)
  Receive Date: 20241108
  Receipt Date: 20241119
  Transmission Date: 20250115
  Serious: Yes (Hospitalization)
  Sender: Haleon PLC
  Company Number: JP-HALEON-2207263

PATIENT
  Age: 5 Decade
  Sex: Male

DRUGS (1)
  1. NICOTINELL [Suspect]
     Active Substance: NICOTINE
     Indication: Product used for unknown indication
     Dosage: TIME INTERVAL: AS NECESSARY
     Route: 062

REACTIONS (6)
  - Anaphylactoid reaction [Unknown]
  - Urticaria [Unknown]
  - Pharyngeal swelling [Unknown]
  - Application site erythema [Unknown]
  - Application site swelling [Unknown]
  - Product use issue [Unknown]

NARRATIVE: CASE EVENT DATE: 20241004
